FAERS Safety Report 22192819 (Version 4)
Quarter: 2023Q2

REPORT INFORMATION
  Report Type: Report from Study
  Country: CO (occurrence: CO)
  Receive Date: 20230410
  Receipt Date: 20230523
  Transmission Date: 20230722
  Serious: Yes (Other)
  Sender: FDA-Public Use
  Company Number: CO-002147023-NVSC2023CO082105

PATIENT
  Sex: Female

DRUGS (7)
  1. COSENTYX [Suspect]
     Active Substance: SECUKINUMAB
     Indication: Ankylosing spondylitis
     Dosage: 150 MG, QW (EVERY 6 DAYS) WEEKS 0,1,2,3,4
     Route: 058
  2. COSENTYX [Suspect]
     Active Substance: SECUKINUMAB
     Dosage: 150 MG, QMO
     Route: 065
  3. COSENTYX [Suspect]
     Active Substance: SECUKINUMAB
     Dosage: UNK (4TH APPLICATION OF THE IMPREGNATION PHASE OF THE MEDICATION ON 12 APR)
     Route: 065
  4. COSENTYX [Suspect]
     Active Substance: SECUKINUMAB
     Dosage: UNK (5TH APPLICATION OF THE IMPREGNATION PHASE OF THE MEDICATION ON 19 APR)
     Route: 065
  5. COSENTYX [Suspect]
     Active Substance: SECUKINUMAB
     Dosage: UNK, QMO (CONTINUES MONTHLY)
     Route: 065
  6. COSENTYX [Suspect]
     Active Substance: SECUKINUMAB
     Dosage: 150 MG, QMO ( IN THE MONTH OF MARCH (NO EXACT DATE PROVIDED)
     Route: 065
  7. COSENTYX [Suspect]
     Active Substance: SECUKINUMAB
     Dosage: UNK, QMO (19 MAY)
     Route: 065

REACTIONS (6)
  - Cellulitis [Unknown]
  - Inflammation of wound [Unknown]
  - Influenza [Unknown]
  - Oropharyngeal pain [Unknown]
  - Animal bite [Unknown]
  - Infected bite [Recovered/Resolved]
